FAERS Safety Report 19391022 (Version 3)
Quarter: 2021Q4

REPORT INFORMATION
  Report Type: Report from Study
  Country: DE (occurrence: DE)
  Receive Date: 20210609
  Receipt Date: 20211202
  Transmission Date: 20220303
  Serious: Yes (Hospitalization, Other)
  Sender: FDA-Public Use
  Company Number: DE-ABBVIE-21K-062-3934390-00

PATIENT
  Age: 59 Year
  Sex: Male
  Weight: 88 kg

DRUGS (5)
  1. SKYRIZI [Suspect]
     Active Substance: RISANKIZUMAB-RZAA
     Indication: Psoriasis
     Route: 058
     Dates: start: 20191023, end: 20201201
  2. ELIQUIS [Concomitant]
     Active Substance: APIXABAN
     Indication: Product used for unknown indication
     Dates: start: 20210130
  3. CANDESARTAN [Concomitant]
     Active Substance: CANDESARTAN
     Indication: Product used for unknown indication
     Dates: start: 20210130
  4. METOPROLOL [Concomitant]
     Active Substance: METOPROLOL
     Indication: Product used for unknown indication
     Dates: start: 20210130
  5. ATORVASTATIN [Concomitant]
     Active Substance: ATORVASTATIN
     Indication: Product used for unknown indication
     Dates: start: 20210130

REACTIONS (60)
  - Unresponsive to stimuli [Recovered/Resolved]
  - Atrial fibrillation [Recovered/Resolved]
  - Atrial fibrillation [Unknown]
  - Hypotension [Unknown]
  - Escherichia sepsis [Recovered/Resolved]
  - General physical health deterioration [Unknown]
  - Escherichia urinary tract infection [Unknown]
  - Hepatosplenomegaly [Unknown]
  - Prostatomegaly [Unknown]
  - White blood cell count increased [Unknown]
  - Mean cell volume decreased [Unknown]
  - Mean cell haemoglobin concentration increased [Unknown]
  - Platelet count decreased [Unknown]
  - Platelet count increased [Unknown]
  - Red blood cell count decreased [Unknown]
  - Mean platelet volume decreased [Unknown]
  - Activated partial thromboplastin time shortened [Unknown]
  - Aspartate aminotransferase increased [Unknown]
  - Alanine aminotransferase increased [Unknown]
  - Blood creatine phosphokinase increased [Unknown]
  - Blood creatine phosphokinase MB increased [Unknown]
  - Blood lactate dehydrogenase increased [Unknown]
  - Lipase increased [Unknown]
  - Blood sodium decreased [Unknown]
  - Blood chloride decreased [Unknown]
  - Blood phosphorus decreased [Unknown]
  - Blood urea increased [Unknown]
  - Blood creatinine increased [Unknown]
  - Blood uric acid decreased [Unknown]
  - Coronary artery disease [Recovered/Resolved]
  - Blood triglycerides increased [Unknown]
  - High density lipoprotein decreased [Unknown]
  - C-reactive protein increased [Unknown]
  - Blood glucose increased [Unknown]
  - N-terminal prohormone brain natriuretic peptide increased [Unknown]
  - Procalcitonin increased [Unknown]
  - Urine leukocyte esterase positive [Unknown]
  - Red blood cells urine positive [Unknown]
  - Protein urine present [Unknown]
  - Gilbert^s syndrome [Unknown]
  - Pyrexia [Recovered/Resolved]
  - Infection [Recovered/Resolved]
  - Haematuria [Unknown]
  - Unevaluable event [Unknown]
  - Haematocrit decreased [Unknown]
  - Dysuria [Recovered/Resolved]
  - Gamma-glutamyltransferase increased [Unknown]
  - Blood bilirubin increased [Unknown]
  - Urosepsis [Recovered/Resolved]
  - Coronary artery stenosis [Recovered/Resolved]
  - Pericardial effusion [Recovered/Resolved]
  - Ventricular hypokinesia [Recovered/Resolved]
  - Flatulence [Recovered/Resolved]
  - Pollakiuria [Unknown]
  - Atrial fibrillation [Unknown]
  - Angiocardiogram [Unknown]
  - Antibiotic therapy [Unknown]
  - Splenomegaly [Unknown]
  - Hepatobiliary disease [Unknown]
  - Prostatomegaly [Unknown]

NARRATIVE: CASE EVENT DATE: 20210126
